FAERS Safety Report 6015902-2 (Version None)
Quarter: 2008Q4

REPORT INFORMATION
  Report Type: 
  Country: None (occurrence: None)
  Receive Date: 20081222
  Receipt Date: 20081215
  Transmission Date: 20090506
  Serious: Yes (Hospitalization)
  Sender: FDA-Public Use
  Company Number: B0550354A

PATIENT
  Age: 68 Year
  Sex: Female

DRUGS (5)
  1. ZOPHREN [Suspect]
     Indication: PREMEDICATION
     Dosage: 8MG PER DAY
     Route: 042
     Dates: start: 20081104, end: 20081106
  2. DETICENE [Suspect]
     Dosage: 396MG PER DAY
     Route: 042
     Dates: start: 20081104, end: 20081106
  3. BICNU [Suspect]
     Dosage: 216MG SINGLE DOSE
     Route: 042
     Dates: start: 20081104, end: 20081104
  4. CISPLATIN [Suspect]
     Dosage: 45MG PER DAY
     Route: 042
     Dates: start: 20081104, end: 20081106
  5. PRIMPERAN TAB [Suspect]
     Indication: PREMEDICATION
     Route: 065
     Dates: start: 20081104

REACTIONS (5)
  - ABDOMINAL PAIN [None]
  - C-REACTIVE PROTEIN INCREASED [None]
  - COLITIS ISCHAEMIC [None]
  - HYPOKALAEMIA [None]
  - RECTAL HAEMORRHAGE [None]
